FAERS Safety Report 13028658 (Version 1)
Quarter: 2016Q4

REPORT INFORMATION
  Report Type: Not Available
  Country: CY (occurrence: CY)
  Receive Date: 20161214
  Receipt Date: 20161214
  Transmission Date: 20170207
  Serious: Yes (Life-Threatening, Hospitalization)
  Sender: FDA-Public Use
  Company Number: CY-IDTAUSTRALIA-2016-CY-000001

PATIENT
  Age: 51 Year
  Sex: Male

DRUGS (2)
  1. DOXAZOSIN [Suspect]
     Active Substance: DOXAZOSIN\DOXAZOSIN MESYLATE
     Dosage: UNKNOWN
     Route: 065
  2. LOSARTAN. [Concomitant]
     Active Substance: LOSARTAN
     Dosage: UNKNOWN
     Route: 065

REACTIONS (1)
  - Acute coronary syndrome [Unknown]
